FAERS Safety Report 7942588 (Version 10)
Quarter: 2016Q1

REPORT INFORMATION
  Report Type: Report from Study
  Country: CA (occurrence: CA)
  Receive Date: 20110512
  Receipt Date: 20160202
  Transmission Date: 20160526
  Serious: Yes (Hospitalization, Other)
  Sender: FDA-Public Use
  Company Number: PHHY2010CA56380

PATIENT
  Age: 47 Year
  Sex: Female
  Weight: 145.58 kg

DRUGS (1)
  1. SANDOSTATIN LAR DEPOT [Suspect]
     Active Substance: OCTREOTIDE ACETATE
     Indication: PITUITARY TUMOUR
     Dosage: 30 MG, QMO
     Route: 030
     Dates: start: 20000501

REACTIONS (22)
  - Depressed mood [Unknown]
  - Musculoskeletal pain [Unknown]
  - Nephrolithiasis [Unknown]
  - Injection site bruising [Unknown]
  - Exostosis [Unknown]
  - Fall [Recovered/Resolved]
  - Weight loss poor [Unknown]
  - Contusion [Unknown]
  - Abdominal pain [Recovered/Resolved]
  - Diarrhoea [Unknown]
  - Vomiting [Unknown]
  - Cholelithiasis [Unknown]
  - Overweight [Unknown]
  - Limb discomfort [Unknown]
  - Joint swelling [Not Recovered/Not Resolved]
  - Nasopharyngitis [Unknown]
  - Influenza [Unknown]
  - Injection site swelling [Unknown]
  - Syringe issue [Unknown]
  - Injection site haemorrhage [Unknown]
  - Feeling abnormal [Unknown]
  - Abdominal pain lower [Unknown]

NARRATIVE: CASE EVENT DATE: 20100730
